FAERS Safety Report 11798159 (Version 1)
Quarter: 2015Q4

REPORT INFORMATION
  Report Type: Other
  Country: NL (occurrence: NL)
  Receive Date: 20151203
  Receipt Date: 20151203
  Transmission Date: 20160305
  Serious: Yes (Other)
  Sender: FDA-Public Use
  Company Number: NL-SYMPLMED PHARMACEUTICALS-2015SYMPLMED000089

PATIENT

DRUGS (3)
  1. PERINDOPRIL ERBUMINE. [Suspect]
     Active Substance: PERINDOPRIL ERBUMINE
     Indication: OFF LABEL USE
  2. METOPROLOL TARTRATE. [Concomitant]
     Active Substance: METOPROLOL TARTRATE
     Indication: PRODUCT USED FOR UNKNOWN INDICATION
     Dosage: 50 MG, QD
     Dates: start: 20151102
  3. PERINDOPRIL ERBUMINE. [Suspect]
     Active Substance: PERINDOPRIL ERBUMINE
     Indication: MITRAL VALVE INCOMPETENCE
     Dosage: 2 MG, QD
     Route: 048
     Dates: start: 20151102, end: 20151112

REACTIONS (2)
  - Angioedema [Recovered/Resolved with Sequelae]
  - Dry mouth [Recovering/Resolving]

NARRATIVE: CASE EVENT DATE: 20151112
